FAERS Safety Report 9228041 (Version 1)
Quarter: 2013Q2

REPORT INFORMATION
  Report Type: Spontaneous
  Country: DE (occurrence: DE)
  Receive Date: 20130412
  Receipt Date: 20130412
  Transmission Date: 20140414
  Serious: Yes (Life-Threatening, Hospitalization, Disabling, Other)
  Sender: FDA-Public Use
  Company Number: DE-PFIZER INC-2013116533

PATIENT
  Age: 59 Year
  Sex: Male

DRUGS (10)
  1. RAMIPRIL [Suspect]
     Dosage: 10 MG, 1X/DAY
     Route: 048
     Dates: start: 20120715
  2. ATORVASTATIN CALCIUM [Suspect]
     Dosage: 40 MG, 1X/DAY
     Route: 048
  3. BRILIQUE [Suspect]
     Indication: MYOCARDIAL INFARCTION
     Dosage: 90 MG, 2X/DAY
     Route: 048
     Dates: start: 20120714
  4. BRILIQUE [Suspect]
     Indication: CARDIAC FAILURE
  5. EZETROL [Suspect]
     Indication: PRODUCT USED FOR UNKNOWN INDICATION
     Dosage: 10 MG, 1X/DAY
     Route: 048
     Dates: start: 20120715
  6. CARMEN [Suspect]
     Dosage: 20 MG, 1X/DAY
     Route: 048
     Dates: start: 20120715
  7. ACETYLSALICYLIC ACID [Concomitant]
     Dosage: UNK
     Dates: start: 20120714
  8. METOPROLOL [Concomitant]
     Dosage: UNK
     Dates: start: 20120715
  9. PANTOPRAZOLE [Concomitant]
     Dosage: UNK
     Dates: start: 20120715
  10. FUROSEMIDE [Concomitant]
     Dosage: UNK
     Dates: start: 20120715

REACTIONS (4)
  - Acute hepatic failure [Recovered/Resolved with Sequelae]
  - Hepatic necrosis [Recovered/Resolved with Sequelae]
  - Hepatic fibrosis [Unknown]
  - Chronic hepatitis [Unknown]
